FAERS Safety Report 6337379-X (Version None)
Quarter: 2009Q3

REPORT INFORMATION
  Report Type: 
  Country: None (occurrence: None)
  Receive Date: 20090901
  Receipt Date: 20090901
  Transmission Date: 20100115
  Serious: Yes (Hospitalization, Other)
  Sender: FDA-Public Use
  Company Number: None

PATIENT
  Age: 81 Year
  Sex: Male
  Weight: 75.59 kg

DRUGS (1)
  1. MORPHINE [Suspect]
     Indication: PAIN
     Dosage: 2 MG PRN IV
     Route: 042
     Dates: start: 20090826, end: 20090828

REACTIONS (3)
  - AGITATION [None]
  - CONFUSIONAL STATE [None]
  - HALLUCINATION [None]
